FAERS Safety Report 18889389 (Version 1)
Quarter: 2021Q1

REPORT INFORMATION
  Report Type: Spontaneous
  Country: DE (occurrence: DE)
  Receive Date: 20210213
  Receipt Date: 20210213
  Transmission Date: 20210420
  Serious: No
  Sender: FDA-Public Use
  Company Number: DE-ALKEM LABORATORIES LIMITED-DE-ALKEM-2020-08657

PATIENT
  Sex: Male

DRUGS (8)
  1. PREGABALIN. [Suspect]
     Active Substance: PREGABALIN
     Indication: PAIN MANAGEMENT
     Dosage: UNK
     Route: 065
  2. FENTANYL. [Suspect]
     Active Substance: FENTANYL
     Indication: PAIN MANAGEMENT
     Dosage: UNK, UP TO 75 MICROGRAM
     Route: 065
  3. NALOXONE, OXYCODONE [Suspect]
     Active Substance: NALOXONE HYDROCHLORIDE\OXYCODONE HYDROCHLORIDE
     Indication: PAIN MANAGEMENT
     Dosage: UNK, UP TO 100 MG/DAY
     Route: 065
  4. DRONABINOL. [Suspect]
     Active Substance: DRONABINOL
     Indication: PAIN MANAGEMENT
     Dosage: 0.5 MILLIGRAM, QD
     Route: 065
  5. GABAPENTIN. [Suspect]
     Active Substance: GABAPENTIN
     Indication: PAIN MANAGEMENT
     Dosage: UNK
     Route: 065
  6. AMITRIPTYLINE [Suspect]
     Active Substance: AMITRIPTYLINE
     Indication: PAIN MANAGEMENT
     Dosage: UNK
     Route: 065
  7. BUPRENORPHINE. [Suspect]
     Active Substance: BUPRENORPHINE
     Indication: PAIN MANAGEMENT
     Dosage: UNK
     Route: 065
  8. DULOXETINE HYDROCHLORIDE. [Suspect]
     Active Substance: DULOXETINE HYDROCHLORIDE
     Indication: PAIN MANAGEMENT
     Dosage: UNK
     Route: 065

REACTIONS (7)
  - Skin irritation [Unknown]
  - Labelled drug-food interaction medication error [Unknown]
  - Pain [Recovering/Resolving]
  - Product use in unapproved indication [Unknown]
  - Constipation [Unknown]
  - Nausea [Unknown]
  - Labelled drug-drug interaction medication error [Unknown]
